FAERS Safety Report 20258286 (Version 1)
Quarter: 2021Q4

REPORT INFORMATION
  Report Type: Spontaneous
  Country: US (occurrence: US)
  Receive Date: 20211230
  Receipt Date: 20211230
  Transmission Date: 20220303
  Serious: No
  Sender: FDA-Public Use
  Company Number: US-CELGENE-USA-20211208302

PATIENT
  Sex: Male
  Weight: 134.84 kg

DRUGS (2)
  1. THALIDOMIDE [Suspect]
     Active Substance: THALIDOMIDE
     Indication: Systemic lupus erythematosus
     Dosage: 100 MILLIGRAM
     Route: 048
     Dates: start: 20190927
  2. THALIDOMIDE [Suspect]
     Active Substance: THALIDOMIDE
     Indication: Cutaneous lupus erythematosus

REACTIONS (4)
  - Fatigue [Unknown]
  - Nocturnal fear [Unknown]
  - Abdominal discomfort [Unknown]
  - Systemic lupus erythematosus [Unknown]
